FAERS Safety Report 5810349-3 (Version None)
Quarter: 2008Q3

REPORT INFORMATION
  Report Type: 
  Country: None (occurrence: None)
  Receive Date: 20080715
  Receipt Date: 20080519
  Transmission Date: 20090109
  Serious: Yes (Hospitalization)
  Sender: FDA-Public Use
  Company Number: A0728541A

PATIENT
  Age: 47 Year
  Sex: Female

DRUGS (5)
  1. IMITREX [Suspect]
     Indication: MIGRAINE
     Route: 048
     Dates: start: 20040101, end: 20040101
  2. IMITREX [Suspect]
     Route: 045
     Dates: start: 20050101, end: 20050101
  3. IMITREX [Suspect]
     Route: 058
  4. ALLEGRA-D [Concomitant]
  5. BENADRYL [Concomitant]

REACTIONS (1)
  - DRUG INEFFECTIVE [None]
